FAERS Safety Report 11265441 (Version 1)
Quarter: 2015Q3

REPORT INFORMATION
  Report Type: Spontaneous
  Country: SE (occurrence: SE)
  Receive Date: 20150713
  Receipt Date: 20150713
  Transmission Date: 20151125
  Serious: Yes (Disabling)
  Sender: FDA-Public Use
  Company Number: SE-TEVA-576319ISR

PATIENT
  Age: 82 Year
  Sex: Female
  Weight: 70 kg

DRUGS (3)
  1. ALENDRONIC ACID [Concomitant]
     Active Substance: ALENDRONIC ACID
  2. SIMVASTATIN TEVA 20 MG FILM-COATED TABLET [Suspect]
     Active Substance: SIMVASTATIN
     Indication: BLOOD CHOLESTEROL INCREASED
     Dosage: 20 MILLIGRAM DAILY;
     Route: 048
     Dates: start: 20150124, end: 201505
  3. CALCIUM [Concomitant]
     Active Substance: CALCIUM

REACTIONS (7)
  - Haematoma [Not Recovered/Not Resolved]
  - Headache [Not Recovered/Not Resolved]
  - Chromaturia [Not Recovered/Not Resolved]
  - Head titubation [Not Recovered/Not Resolved]
  - Urticaria [Not Recovered/Not Resolved]
  - Dizziness [Not Recovered/Not Resolved]
  - Tremor [Not Recovered/Not Resolved]

NARRATIVE: CASE EVENT DATE: 2015
